FAERS Safety Report 21523378 (Version 1)
Quarter: 2022Q4

REPORT INFORMATION
  Report Type: Report from Study
  Country: BE (occurrence: BE)
  Receive Date: 20221029
  Receipt Date: 20221029
  Transmission Date: 20230113
  Serious: Yes (Death)
  Sender: FDA-Public Use
  Company Number: BE-ABBVIE-4180251

PATIENT
  Sex: Male
  Weight: 61 kg

DRUGS (13)
  1. CARBIDOPA\LEVODOPA [Suspect]
     Active Substance: CARBIDOPA\LEVODOPA
     Indication: Parkinson^s disease
     Dosage: MD 4.0 ML; CD 4.0 ML/HR DURING 24 HOURS; ED 2.5 ML; CND 2.5 ML/HR
     Route: 050
     Dates: start: 20220408
  2. CARBIDOPA\LEVODOPA [Suspect]
     Active Substance: CARBIDOPA\LEVODOPA
     Route: 050
     Dates: start: 20191212
  3. TAMSULOSIN [Concomitant]
     Active Substance: TAMSULOSIN
     Indication: Product used for unknown indication
     Dosage: FORM STRENGTH: 0.4 MG, 1 CAPSULE?FREQUENCY TEXT: AT 08:00 HRS
  4. LISINOPRIL [Concomitant]
     Active Substance: LISINOPRIL
     Indication: Product used for unknown indication
     Dosage: 20 MG?FREQUENCY TEXT: AT 08:00
  5. AMLODIPINE BESYLATE [Concomitant]
     Active Substance: AMLODIPINE BESYLATE
     Indication: Product used for unknown indication
     Dosage: 5 MG?FREQUENCY TEXT: AT 20:00 HRS
  6. LIORESAL [Concomitant]
     Active Substance: BACLOFEN
     Indication: Product used for unknown indication
     Dosage: 0.5 TABLET?10 MG?FREQUENCY TEXT: AT 08:00 AND 20:00 HRS
  7. LIORESAL [Concomitant]
     Active Substance: BACLOFEN
     Indication: Product used for unknown indication
     Dosage: FREQUENCY TEXT: AT 12:00 HRS
  8. BENSERAZIDE\LEVODOPA [Concomitant]
     Active Substance: BENSERAZIDE\LEVODOPA
     Indication: Product used for unknown indication
     Dosage: DISPERSIBLE?125 UNKNOWN?FREQUENCY TEXT: AT 06:00 HRS
  9. BENSERAZIDE\LEVODOPA [Concomitant]
     Active Substance: BENSERAZIDE\LEVODOPA
     Indication: Product used for unknown indication
     Dosage: 250 UNKNOWN?FREQUENCY TEXT: 07:00, 10:00, 13:00, 16:00, 19:00, 21:00
  10. RIVOTRIL [Concomitant]
     Active Substance: CLONAZEPAM
     Indication: Product used for unknown indication
     Dosage: FORM STRENGTH: 0.5 MG?FREQUENCY TEXT: AT 20:00 HRS
  11. Pantomed [Concomitant]
     Indication: Product used for unknown indication
     Dosage: 20 UNKNOWN?FREQUENCY TEXT: AT 08:00 HRS
  12. XADAGO [Concomitant]
     Active Substance: SAFINAMIDE MESYLATE
     Indication: Product used for unknown indication
     Dosage: 50 MG?FREQUENCY TEXT: AT 12:00 HRS
  13. SEROQUEL [Concomitant]
     Active Substance: QUETIAPINE FUMARATE
     Indication: Product used for unknown indication
     Dosage: RETARD?50 MG?FREQUENCY TEXT: AT 20:00 HRS

REACTIONS (1)
  - Death [Fatal]
